FAERS Safety Report 14333238 (Version 2)
Quarter: 2018Q1

REPORT INFORMATION
  Report Type: Spontaneous
  Country: SI (occurrence: SI)
  Receive Date: 20171228
  Receipt Date: 20180125
  Transmission Date: 20180509
  Serious: Yes (Hospitalization)
  Sender: FDA-Public Use
  Company Number: PHHY2017SI192732

PATIENT
  Age: 71 Year
  Sex: Male

DRUGS (4)
  1. PLIVIT D3 [Suspect]
     Active Substance: CHOLECALCIFEROL
     Indication: PRODUCT USED FOR UNKNOWN INDICATION
     Dosage: 35 GTT, QW
     Route: 048
  2. EUTIROX [Suspect]
     Active Substance: LEVOTHYROXINE SODIUM
     Indication: PRODUCT USED FOR UNKNOWN INDICATION
     Dosage: 100 UG, UNK
     Route: 048
  3. SANDOSTATIN LAR DEPOT [Suspect]
     Active Substance: OCTREOTIDE ACETATE
     Indication: ACROMEGALY
     Dosage: 20 MG, QMO (EVERY 28 DAYS)
     Route: 030
     Dates: start: 20100609
  4. CALCIUM CARBONATE. [Suspect]
     Active Substance: CALCIUM CARBONATE
     Indication: PRODUCT USED FOR UNKNOWN INDICATION
     Dosage: 0.5 TO1 G, QD
     Route: 048

REACTIONS (9)
  - Injury [Recovering/Resolving]
  - Head injury [Unknown]
  - Pancreatitis acute [Recovering/Resolving]
  - Cholestasis [Recovering/Resolving]
  - Fall [Recovering/Resolving]
  - Chest injury [Unknown]
  - Mobility decreased [Unknown]
  - Cholecystitis acute [Recovering/Resolving]
  - Microlithiasis [Recovering/Resolving]

NARRATIVE: CASE EVENT DATE: 20171124
